FAERS Safety Report 16410361 (Version 2)
Quarter: 2019Q4

REPORT INFORMATION
  Report Type: Spontaneous
  Country: US (occurrence: US)
  Receive Date: 20190610
  Receipt Date: 20191209
  Transmission Date: 20200122
  Serious: No
  Sender: FDA-Public Use
  Company Number: US-PFIZER INC-2019244042

PATIENT
  Age: 74 Year
  Sex: Female

DRUGS (1)
  1. XELJANZ XR [Suspect]
     Active Substance: TOFACITINIB CITRATE
     Indication: RHEUMATOID ARTHRITIS
     Dosage: 11 MG, DAILY
     Route: 048
     Dates: start: 201902

REACTIONS (5)
  - Rhinorrhoea [Unknown]
  - Upper respiratory tract congestion [Unknown]
  - Nasal congestion [Unknown]
  - Fatigue [Unknown]
  - Pollakiuria [Unknown]
